FAERS Safety Report 9405216 (Version 1)
Quarter: 2013Q3

REPORT INFORMATION
  Report Type: Spontaneous
  Country: BE (occurrence: BE)
  Receive Date: 20130717
  Receipt Date: 20130717
  Transmission Date: 20140515
  Serious: Yes (Other)
  Sender: FDA-Public Use
  Company Number: PHHY2013BE074794

PATIENT
  Sex: Male
  Weight: 70 kg

DRUGS (2)
  1. CISATRACURIUM BESYLATE [Suspect]
     Dosage: 6 ML, ONCE/SINGLE
     Dates: start: 2013, end: 2013
  2. ESMERON [Interacting]
     Dosage: 0.6 MG/KG, ONCE/SINGLE
     Dates: start: 2013, end: 2013

REACTIONS (1)
  - Drug interaction [Recovered/Resolved]
